FAERS Safety Report 23175460 (Version 2)
Quarter: 2023Q4

REPORT INFORMATION
  Report Type: Spontaneous
  Country: US (occurrence: US)
  Receive Date: 20231113
  Receipt Date: 20231116
  Transmission Date: 20240110
  Serious: No
  Sender: FDA-Public Use
  Company Number: US-AMGEN-USASP2023200762

PATIENT
  Age: 52 Year
  Sex: Male

DRUGS (1)
  1. BLINCYTO [Suspect]
     Active Substance: BLINATUMOMAB
     Indication: B precursor type acute leukaemia
     Dosage: TOTAL DOSE: 196MCG- THE PATIENT GOT 4 DAYS WORTH OF THE 7-DAY BLINCYTO BAG, ^SO HE GOT 112MCG AND TH
     Route: 065

REACTIONS (1)
  - Device infusion issue [Unknown]

NARRATIVE: CASE EVENT DATE: 20231005
